FAERS Safety Report 23078269 (Version 1)
Quarter: 2023Q4

REPORT INFORMATION
  Report Type: Spontaneous
  Country: CN (occurrence: CN)
  Receive Date: 20231018
  Receipt Date: 20231018
  Transmission Date: 20240110
  Serious: Yes (Hospitalization)
  Sender: FDA-Public Use
  Company Number: CN-JNJFOC-20231025415

PATIENT
  Age: 13 Year
  Sex: Female
  Weight: 86 kg

DRUGS (4)
  1. RISPERDAL [Suspect]
     Active Substance: RISPERIDONE
     Indication: Major depression
     Dosage: LAST ADMINISTERED; 20-SEP-2023
     Route: 048
     Dates: start: 20230904
  2. RISPERDAL [Suspect]
     Active Substance: RISPERIDONE
     Dosage: LAST ADMINISTERED 18/SEP/2023
     Route: 048
     Dates: start: 20230906
  3. RISPERDAL [Suspect]
     Active Substance: RISPERIDONE
     Route: 048
     Dates: start: 20230918
  4. RISPERDAL [Suspect]
     Active Substance: RISPERIDONE
     Route: 048
     Dates: start: 20230922

REACTIONS (2)
  - Agitation [Recovered/Resolved]
  - Emotional disorder [Recovered/Resolved]

NARRATIVE: CASE EVENT DATE: 20230915
